FAERS Safety Report 7224563-6 (Version None)
Quarter: 2011Q1

REPORT INFORMATION
  Report Type: 
  Country: None (occurrence: None)
  Receive Date: 20110106
  Receipt Date: 20110106
  Transmission Date: 20110831
  Serious: Yes (Hospitalization)
  Sender: FDA-Public Use
  Company Number: None

PATIENT
  Age: 35 Year
  Sex: Female
  Weight: 72.9 kg

DRUGS (4)
  1. PROBIOTIC [Suspect]
  2. COUMADIN [Suspect]
     Indication: DEEP VEIN THROMBOSIS
     Dosage: 10MG DAILY 4DAYS/WK PO  : 12.5MG 3DAYS/WK PO  CHRONIC
     Route: 048
  3. FISH OIL [Suspect]
  4. M.V.I. [Concomitant]

REACTIONS (9)
  - PAIN IN EXTREMITY [None]
  - HEADACHE [None]
  - OEDEMA PERIPHERAL [None]
  - VERTIGO [None]
  - ARTHRALGIA [None]
  - SYNCOPE [None]
  - INTERNATIONAL NORMALISED RATIO INCREASED [None]
  - HAEMATURIA [None]
  - ACTIVATED PARTIAL THROMBOPLASTIN TIME PROLONGED [None]
